FAERS Safety Report 7627917-9 (Version None)
Quarter: 2011Q3

REPORT INFORMATION
  Report Type: 
  Country: None (occurrence: None)
  Receive Date: 20110721
  Receipt Date: 20110718
  Transmission Date: 20111222
  Serious: Yes (Hospitalization, Other)
  Sender: FDA-Public Use
  Company Number: DE-AMGEN-DEUSP2011031001

PATIENT
  Age: 23 Year
  Sex: Male
  Weight: 65 kg

DRUGS (6)
  1. CLORAZEPATE DIPOTASSIUM [Concomitant]
     Dosage: 15 MG, UNK
     Route: 048
  2. PANTOZOL                           /01263202/ [Concomitant]
     Route: 048
  3. KEPPRA [Concomitant]
     Route: 048
  4. NPLATE [Suspect]
     Indication: IDIOPATHIC THROMBOCYTOPENIC PURPURA
     Dosage: 0.48 ML, QWK
     Route: 058
     Dates: start: 20100401
  5. VIMPAT [Concomitant]
     Route: 048
  6. LEVOTHYROXINE SODIUM [Concomitant]
     Route: 048

REACTIONS (1)
  - PLATELET COUNT DECREASED [None]
